FAERS Safety Report 25214623 (Version 3)
Quarter: 2025Q2

REPORT INFORMATION
  Report Type: Spontaneous
  Country: DE (occurrence: DE)
  Receive Date: 20250418
  Receipt Date: 20250509
  Transmission Date: 20250717
  Serious: Yes (Death, Other)
  Sender: ADC THERAPEUTICS
  Company Number: DE-BIOVITRUM-2025-DE-005358

PATIENT
  Age: 80 Year
  Sex: Female

DRUGS (2)
  1. ZYNLONTA [Suspect]
     Active Substance: LONCASTUXIMAB TESIRINE-LPYL
     Indication: Diffuse large B-cell lymphoma
     Dosage: UNK, 3 TIMES/WK
     Route: 042
     Dates: start: 202404, end: 202404
  2. ZYNLONTA [Suspect]
     Active Substance: LONCASTUXIMAB TESIRINE-LPYL
     Dosage: UNK, 3 TIMES/WK
     Route: 042
     Dates: start: 20250204, end: 20250204

REACTIONS (5)
  - Sepsis [Fatal]
  - Pancytopenia [Unknown]
  - Infection [Unknown]
  - Neutropenia [Recovering/Resolving]
  - Rash [Unknown]

NARRATIVE: CASE EVENT DATE: 20250202
